FAERS Safety Report 6603874-9 (Version None)
Quarter: 2010Q1

REPORT INFORMATION
  Report Type: 
  Country: None (occurrence: None)
  Receive Date: 20100226
  Receipt Date: 20090302
  Transmission Date: 20100710
  Serious: No
  Sender: FDA-Public Use
  Company Number: A0771147A

PATIENT
  Age: 14 Year
  Sex: Female

DRUGS (3)
  1. LAMOTRIGINE [Suspect]
     Indication: EPILEPSY
     Dosage: 300MG TWICE PER DAY
     Route: 048
     Dates: start: 20081101
  2. TOPAMAX [Concomitant]
  3. MULTI-VITAMIN [Concomitant]

REACTIONS (4)
  - DIZZINESS [None]
  - HYPERVENTILATION [None]
  - NAUSEA [None]
  - PALPITATIONS [None]
